FAERS Safety Report 10366520 (Version 1)
Quarter: 2014Q3

REPORT INFORMATION
  Report Type: Spontaneous
  Country: US (occurrence: US)
  Receive Date: 20140806
  Receipt Date: 20140806
  Transmission Date: 20150326
  Serious: No
  Sender: FDA-Public Use
  Company Number: US-PFIZER INC-2014217405

PATIENT
  Sex: Male

DRUGS (1)
  1. INLYTA [Suspect]
     Active Substance: AXITINIB
     Indication: MALIGNANT URINARY TRACT NEOPLASM
     Dosage: 3 MG, 2X/DAY
     Route: 048
     Dates: start: 20140525

REACTIONS (2)
  - Constipation [Unknown]
  - Diarrhoea [Unknown]
